FAERS Safety Report 13260326 (Version 2)
Quarter: 2017Q1

REPORT INFORMATION
  Report Type: Spontaneous
  Country: US (occurrence: US)
  Receive Date: 20170222
  Receipt Date: 20170307
  Transmission Date: 20170428
  Serious: No
  Sender: FDA-Public Use
  Company Number: US-HORIZON-PEN-0068-2017

PATIENT
  Sex: Female

DRUGS (1)
  1. PENNSAID [Suspect]
     Active Substance: DICLOFENAC SODIUM
     Indication: BURSA DISORDER
     Dosage: 1 PUMP ONCE DAILY

REACTIONS (4)
  - Product contamination [Unknown]
  - Rash [Recovered/Resolved]
  - Intentional product misuse [Unknown]
  - Off label use [Unknown]
